FAERS Safety Report 6195467-5 (Version None)
Quarter: 2009Q2

REPORT INFORMATION
  Report Type: 
  Country: None (occurrence: None)
  Receive Date: 20090519
  Receipt Date: 20090507
  Transmission Date: 20091009
  Serious: Yes (Hospitalization)
  Sender: FDA-Public Use
  Company Number: US-SANOFI-SYNTHELABO-A03200902079

PATIENT
  Sex: Female

DRUGS (16)
  1. PREVACID [Interacting]
     Indication: GASTROOESOPHAGEAL REFLUX DISEASE
     Route: 048
     Dates: end: 20090401
  2. PREVACID [Interacting]
     Indication: ABDOMINAL DISCOMFORT
     Route: 048
     Dates: end: 20090401
  3. PLAVIX [Suspect]
     Indication: CORONARY ARTERY OCCLUSION
     Route: 048
  4. PLAVIX [Interacting]
     Indication: COAGULOPATHY
     Route: 048
  5. NITROGLYCERIN [Concomitant]
     Indication: CARDIAC DISORDER
     Dosage: UNK
     Route: 048
  6. SPIRIVA [Concomitant]
     Indication: DRUG USE FOR UNKNOWN INDICATION
     Dosage: UNK
     Route: 065
  7. DIAZEPAM [Concomitant]
     Indication: ANXIETY
     Dosage: UNK
     Route: 048
  8. SOMA [Concomitant]
     Indication: MUSCLE SPASMS
     Dosage: UNK
     Route: 048
  9. OPANA [Concomitant]
     Indication: PAIN
     Route: 048
  10. ROXICET [Concomitant]
     Indication: PAIN
     Route: 048
  11. LASIX [Concomitant]
     Indication: FLUID RETENTION
     Route: 048
  12. NEURONTIN [Concomitant]
     Indication: TREMOR
     Dosage: 200MG IN MORNING, 300MG IN EVENING
     Route: 048
  13. NEURONTIN [Concomitant]
     Indication: CONVULSION
     Dosage: 200MG IN MORNING, 300MG IN EVENING
     Route: 048
  14. KLOR-CON [Concomitant]
     Indication: MINERAL SUPPLEMENTATION
     Dosage: UNK
     Route: 065
  15. SINGULAIR [Concomitant]
     Indication: SEASONAL ALLERGY
     Route: 048
  16. SALICYLATE [Concomitant]
     Indication: FIBROMYALGIA
     Dosage: UNK
     Route: 065

REACTIONS (4)
  - DRUG INEFFECTIVE [None]
  - DRUG INTERACTION [None]
  - HEAD INJURY [None]
  - MEMORY IMPAIRMENT [None]
